FAERS Safety Report 25597548 (Version 3)
Quarter: 2025Q4

REPORT INFORMATION
  Report Type: Report from Study
  Country: EU (occurrence: EU)
  Receive Date: 20250723
  Receipt Date: 20251008
  Transmission Date: 20260118
  Serious: No
  Sender: FRESENIUS KABI
  Company Number: EU-FreseniusKabi-FK202509977

PATIENT
  Sex: Female
  Weight: 59 kg

DRUGS (1)
  1. IDACIO [Suspect]
     Active Substance: ADALIMUMAB-AACF
     Indication: Crohn^s disease
     Route: 058
     Dates: start: 20240516, end: 20241104

REACTIONS (1)
  - Drug ineffective [Recovered/Resolved with Sequelae]

NARRATIVE: CASE EVENT DATE: 20241104
